FAERS Safety Report 7481566-4 (Version None)
Quarter: 2011Q2

REPORT INFORMATION
  Report Type: 
  Country: None (occurrence: None)
  Receive Date: 20110516
  Receipt Date: 20110512
  Transmission Date: 20111010
  Serious: Yes (Hospitalization)
  Sender: FDA-Public Use
  Company Number: US-ROCHE-703364

PATIENT
  Sex: Male

DRUGS (7)
  1. PEGINTERFERON ALFA-2A [Suspect]
     Dosage: IN WEEK 44
     Route: 058
     Dates: start: 20100915
  2. LORAZEPAM [Concomitant]
  3. MIRTAZAPINE [Concomitant]
  4. PEGINTERFERON ALFA-2A [Suspect]
     Indication: HEPATITIS C
     Dosage: FORM: PRE-FILLED SYRINGE
     Route: 058
     Dates: start: 20100315, end: 20100531
  5. RIBAVIRIN [Suspect]
     Dosage: DIVIDED DOSES, PATIENT IN WEEK 44
     Route: 048
     Dates: start: 20100915
  6. RIBAVIRIN [Suspect]
     Indication: HEPATITIS C
     Route: 048
     Dates: start: 20100315, end: 20100531
  7. RIBAVARIN [Suspect]
     Indication: HEPATITIS C
     Dosage: DIVIDED DOSES.
     Route: 065

REACTIONS (12)
  - EAR DISORDER [None]
  - VERTIGO [None]
  - BACK INJURY [None]
  - WHITE BLOOD CELL COUNT DECREASED [None]
  - SYNCOPE [None]
  - DIZZINESS [None]
  - MUSCULOSKELETAL PAIN [None]
  - RASH GENERALISED [None]
  - RASH MACULAR [None]
  - PURPURA [None]
  - DRY SKIN [None]
  - JOINT SWELLING [None]
